FAERS Safety Report 8940392 (Version 1)
Quarter: 2012Q4

REPORT INFORMATION
  Report Type: 
  Country: DE (occurrence: DE)
  Receive Date: 20121203
  Receipt Date: 20121203
  Transmission Date: 20130627
  Serious: Yes (Hospitalization, Other)
  Sender: FDA-Public Use
  Company Number: DE-UCBSA-009389

PATIENT
  Age: 70 Year
  Sex: Male

DRUGS (10)
  1. ROTIGOTINE [Suspect]
     Indication: PARKINSON^S DISEASE
  2. ROTIGOTINE [Suspect]
     Indication: PARKINSON^S DISEASE
  3. ROTIGOTINE [Suspect]
     Indication: PARKINSON^S DISEASE
  4. QUETIAPINE [Suspect]
     Dosage: 12.5 MG DAILY
  5. HYDROCHLOROTHIAZIDE [Suspect]
  6. RASAGILINE [Suspect]
     Indication: ON AND OFF PHENOMENON
  7. RASAGILINE [Suspect]
     Indication: ON AND OFF PHENOMENON
  8. LEVODOPA/CARBIDOPA/ENTACAPONE [Suspect]
     Dosage: 400 MG L DOPA
  9. CARBIDOPA\ENTACAPONE\LEVODOPA [Suspect]
  10. ANTIHYPERTENSIVE TREATMENT [Concomitant]
     Indication: HYPERTENSION

REACTIONS (5)
  - Rhabdomyolysis [Recovered/Resolved]
  - Abnormal behaviour [Recovered/Resolved]
  - Confusional state [Recovered/Resolved]
  - Hyperhidrosis [Recovered/Resolved]
  - Oedema peripheral [Recovered/Resolved]
